FAERS Safety Report 11240377 (Version 1)
Quarter: 2015Q3

REPORT INFORMATION
  Report Type: Spontaneous
  Country: US (occurrence: None)
  Receive Date: 20150701
  Receipt Date: 20150701
  Transmission Date: 20151125
  Serious: Yes (Hospitalization)
  Sender: FDA-Public Use
  Company Number: None

PATIENT
  Age: 66 Year
  Sex: Male
  Weight: 95.1 kg

DRUGS (1)
  1. METHOTREXATE [Suspect]
     Active Substance: METHOTREXATE
     Indication: RHEUMATOID ARTHRITIS
     Route: 048
     Dates: start: 20110306, end: 20110615

REACTIONS (7)
  - Polyp [None]
  - Cardiac failure congestive [None]
  - Post procedural haemorrhage [None]
  - Iron deficiency [None]
  - Condition aggravated [None]
  - Syncope [None]
  - Anaemia [None]

NARRATIVE: CASE EVENT DATE: 20110502
